FAERS Safety Report 9458571 (Version 1)
Quarter: 2013Q3

REPORT INFORMATION
  Report Type: Spontaneous
  Country: US (occurrence: None)
  Receive Date: 20130813
  Receipt Date: 20130813
  Transmission Date: 20140515
  Serious: Yes (Other)
  Sender: FDA-Public Use
  Company Number: None

PATIENT
  Age: 66 Year
  Sex: Female
  Weight: 79.38 kg

DRUGS (1)
  1. CYMBALTA [Suspect]
     Indication: BIPOLAR DISORDER
     Dosage: 3- 30 MG PER DQY ONCE DAILY TAKEN BY MOUTH?12-15 YEARS
     Route: 048

REACTIONS (13)
  - Dizziness postural [None]
  - Temperature intolerance [None]
  - Syncope [None]
  - Fatigue [None]
  - Dyspnoea exertional [None]
  - Chromaturia [None]
  - Drug withdrawal syndrome [None]
  - Drug abuser [None]
  - Feeling abnormal [None]
  - Headache [None]
  - Mood swings [None]
  - Emotional disorder [None]
  - Vomiting [None]
